FAERS Safety Report 4940447-8 (Version None)
Quarter: 2006Q1

REPORT INFORMATION
  Report Type: 
  Country: None (occurrence: None)
  Receive Date: 20060131
  Receipt Date: 20051110
  Transmission Date: 20060701
  Serious: Yes (Other)
  Sender: FDA-Public Use
  Company Number: 200519166US

PATIENT
  Sex: Female

DRUGS (1)
  1. KETEK [Suspect]
     Indication: LYME DISEASE
     Dosage: PO
     Route: 048

REACTIONS (6)
  - FATIGUE [None]
  - FEELING ABNORMAL [None]
  - HEPATITIS [None]
  - NAUSEA [None]
  - TRANSAMINASES INCREASED [None]
  - YELLOW SKIN [None]
